FAERS Safety Report 6465824-8 (Version None)
Quarter: 2009Q4

REPORT INFORMATION
  Report Type: 
  Country: None (occurrence: None)
  Receive Date: 20091124
  Receipt Date: 20091111
  Transmission Date: 20100525
  Serious: Yes (Hospitalization)
  Sender: FDA-Public Use
  Company Number: AE-2009-280

PATIENT
  Age: 71 Year
  Sex: Male

DRUGS (4)
  1. METOPROLOL [Suspect]
     Indication: ARRHYTHMIA
     Dosage: 100MG,BID
  2. VERAPAMIL [Suspect]
     Indication: ARRHYTHMIA
     Dosage: 240MG,OD
  3. ATENOLOL [Suspect]
     Indication: HEART RATE ABNORMAL
     Dosage: 100MG, OD
  4. DILTIAZEM [Suspect]
     Indication: HEART RATE ABNORMAL
     Dosage: 240MG, OD

REACTIONS (6)
  - ATRIAL FIBRILLATION [None]
  - CARDIOGENIC SHOCK [None]
  - DRUG TOXICITY [None]
  - DYSPNOEA [None]
  - FATIGUE [None]
  - PALPITATIONS [None]
